FAERS Safety Report 9587731 (Version 1)
Quarter: 2013Q4

REPORT INFORMATION
  Report Type: Spontaneous
  Country: US (occurrence: US)
  Receive Date: 20131003
  Receipt Date: 20131003
  Transmission Date: 20140711
  Serious: No
  Sender: FDA-Public Use
  Company Number: US-COVIDIEN/TYCO HEALTHCARE/MALLINCKRODT-T201301788

PATIENT
  Age: 53 Year
  Sex: Female
  Weight: 81.63 kg

DRUGS (8)
  1. EXALGO EXTENDED RELEASE [Suspect]
     Indication: SPINAL PAIN
     Dosage: 8 MG, QD
     Route: 048
     Dates: start: 201101
  2. NAPROXEN [Concomitant]
     Indication: SPINAL PAIN
     Dosage: 220 MG X2, TAB, BID
     Route: 048
  3. OXYCODONE [Concomitant]
     Indication: BREAKTHROUGH PAIN
     Dosage: 5 MG, QID PRN
     Route: 048
  4. LEVOTHYROXINE [Concomitant]
     Indication: SUPPLEMENTATION THERAPY
     Dosage: 112 MCG TAB, QD
     Route: 048
  5. PROGESTERONE [Concomitant]
     Indication: HORMONE REPLACEMENT THERAPY
     Dosage: 200 MG, TAB, BID
     Route: 048
  6. BLEST E2/E3 [Concomitant]
     Indication: HORMONE REPLACEMENT THERAPY
     Dosage: 2.5 MG,  QD
     Route: 048
  7. DHA [Concomitant]
     Indication: SUPPLEMENTATION THERAPY
     Dosage: 25 MG, CAP, QD
     Route: 048
  8. CALCITRIOL [Concomitant]
     Indication: SUPPLEMENTATION THERAPY
     Dosage: 0.25 MCG, CAP QD
     Route: 048

REACTIONS (1)
  - Drug screen negative [Unknown]
